FAERS Safety Report 6749319-X (Version None)
Quarter: 2010Q2

REPORT INFORMATION
  Report Type: 
  Country: None (occurrence: None)
  Receive Date: 20100601
  Receipt Date: 20100525
  Transmission Date: 20101027
  Serious: Yes (Other)
  Sender: FDA-Public Use
  Company Number: JP-ROCHE-637364

PATIENT
  Sex: Female
  Weight: 40 kg

DRUGS (7)
  1. COPEGUS [Suspect]
     Indication: HEPATITIS C
     Route: 048
     Dates: start: 20081024, end: 20090430
  2. PEGASYS [Suspect]
     Indication: HEPATITIS C
     Route: 058
     Dates: start: 20081024, end: 20081107
  3. PEGASYS [Suspect]
     Dosage: DOSE DECREASED
     Route: 058
     Dates: start: 20081114, end: 20090430
  4. JUVELA [Concomitant]
     Dosage: NOTE: DOSAGE IS UNCERTAIN.
     Route: 048
     Dates: start: 19970101
  5. NORVASC [Concomitant]
     Dosage: NOTE: DOSAGE IS UNCERTAIN.
     Route: 048
     Dates: start: 19970101
  6. CANDESARTAN CILEXETIL [Concomitant]
     Dosage: NOTE: DOSAGE IS UNCERTAIN.
     Route: 048
     Dates: start: 19970101
  7. THYRADIN [Concomitant]
     Route: 048
     Dates: start: 20081127, end: 20090410

REACTIONS (1)
  - RETINAL VEIN OCCLUSION [None]
